FAERS Safety Report 11651244 (Version 1)
Quarter: 2015Q4

REPORT INFORMATION
  Report Type: Report from Study
  Country: US (occurrence: US)
  Receive Date: 20151021
  Receipt Date: 20151021
  Transmission Date: 20160304
  Serious: Yes (Other)
  Sender: FDA-Public Use
  Company Number: US-ROCHE-1648880

PATIENT

DRUGS (4)
  1. RITUXIMAB [Suspect]
     Active Substance: RITUXIMAB
     Indication: LYMPHOCYTIC LYMPHOMA
     Dosage: DAYS 1, 8, 15 AND 22 OF CYCLE 1 AND DAY 1 OF EACH SUBSEQUENT 28-DAY CYCLE FOR 12 CYCLES.
     Route: 042
  2. RITUXIMAB [Suspect]
     Active Substance: RITUXIMAB
     Indication: B-CELL LYMPHOMA
  3. LENALIDOMIDE [Suspect]
     Active Substance: LENALIDOMIDE
     Indication: B-CELL LYMPHOMA
  4. LENALIDOMIDE [Suspect]
     Active Substance: LENALIDOMIDE
     Indication: LYMPHOCYTIC LYMPHOMA
     Dosage: ON DAYS 1-21
     Route: 065

REACTIONS (9)
  - Fatigue [Unknown]
  - Neutropenia [Unknown]
  - Plasma cell myeloma [Unknown]
  - Rash [Unknown]
  - Febrile neutropenia [Unknown]
  - Thrombocytopenia [Unknown]
  - Pain [Unknown]
  - Diarrhoea [Unknown]
  - Colon cancer [Unknown]
